FAERS Safety Report 5129510-9 (Version None)
Quarter: 2006Q4

REPORT INFORMATION
  Report Type: 
  Country: None (occurrence: None)
  Receive Date: 20061012
  Receipt Date: 20061002
  Transmission Date: 20070319
  Serious: Yes (Hospitalization)
  Sender: FDA-Public Use
  Company Number: 148061USA

PATIENT
  Age: 46 Year
  Sex: Male
  Weight: 58.9676 kg

DRUGS (2)
  1. PERPHENAZINE [Suspect]
     Indication: BIPOLAR DISORDER
     Dosage: 12 MG (4 MG, 3 IN 1 D), ORSL
     Route: 048
     Dates: start: 20060501
  2. RISPERIDONE [Concomitant]

REACTIONS (4)
  - CACHEXIA [None]
  - SELF INJURIOUS BEHAVIOUR [None]
  - TREATMENT NONCOMPLIANCE [None]
  - WEIGHT DECREASED [None]
